FAERS Safety Report 14583208 (Version 3)
Quarter: 2018Q4

REPORT INFORMATION
  Report Type: Spontaneous
  Country: FR (occurrence: FR)
  Receive Date: 20180228
  Receipt Date: 20181018
  Transmission Date: 20190204
  Serious: Yes (Hospitalization, Other)
  Sender: FDA-Public Use
  Company Number: FR-009507513-1802FRA009824

PATIENT
  Age: 55 Year
  Sex: Female
  Weight: 46.1 kg

DRUGS (27)
  1. ACTISKENAN [Concomitant]
     Active Substance: MORPHINE SULFATE
     Dosage: AS NECESSARY
  2. CALTRATE WITH VITAMIN D [Concomitant]
     Active Substance: CALCIUM CARBONATE\CHOLECALCIFEROL
     Dosage: 2 DF, QD (STRENGTH 600MG/400UI)
     Route: 048
  3. MOVICOL [Concomitant]
     Active Substance: POLYETHYLENE GLYCOL 3350\POTASSIUM CHLORIDE\SODIUM BICARBONATE\SODIUM CHLORIDE
  4. ECONAZOLE. [Concomitant]
     Active Substance: ECONAZOLE NITRATE
     Dosage: 2 DF, QD
     Route: 003
  5. UVEDOSE [Concomitant]
     Active Substance: CHOLECALCIFEROL
     Dosage: 1DF, QD (STRENGHT: 100000 UI)
     Route: 048
  6. CORDARONE [Concomitant]
     Active Substance: AMIODARONE HYDROCHLORIDE
     Dosage: 100 MG, QD
     Route: 048
  7. INEXIUM (ESOMEPRAZOLE MAGNESIUM) [Concomitant]
     Active Substance: ESOMEPRAZOLE MAGNESIUM
     Dosage: 20 MG, QD
     Route: 048
  8. ZENTIVA B COMPLEX FORTE [Concomitant]
     Dosage: BACLOFENE  ZENTIVA
     Route: 048
  9. SPECIAFOLDINE [Concomitant]
     Active Substance: FOLIC ACID
     Route: 048
  10. DUOPLAVIN [Concomitant]
     Active Substance: ASPIRIN\CLOPIDOGREL
     Dosage: 1 DF, QD
     Route: 048
  11. GARDENAL [Concomitant]
     Active Substance: PHENOBARBITAL
     Dosage: 20 MG, QD
     Route: 048
  12. VALGANCICLOVIR HYDROCHLORIDE. [Concomitant]
     Active Substance: VALGANCICLOVIR HYDROCHLORIDE
     Route: 048
  13. ONBREZ [Concomitant]
     Active Substance: INDACATEROL
     Dosage: 300 MICROGRAM, QD
     Route: 055
  14. RIVOTRIL [Concomitant]
     Active Substance: CLONAZEPAM
     Dosage: 2 MG, QD
     Route: 048
  15. LEVETIRACETAM. [Concomitant]
     Active Substance: LEVETIRACETAM
     Dosage: 1500 MG, QD
     Route: 048
  16. FORSTEO [Concomitant]
     Active Substance: TERIPARATIDE
     Dosage: 1 DF, QD
     Route: 058
  17. VITAMIN A [Concomitant]
     Active Substance: VITAMIN A
     Dosage: VITAMINE A DULCIS 25000 U.I./100G, 2 DF, QD
     Route: 047
  18. INVANZ [Suspect]
     Active Substance: ERTAPENEM SODIUM
     Indication: KLEBSIELLA SEPSIS
     Dosage: 1 G, QD
     Route: 041
     Dates: start: 20171116, end: 20171130
  19. DIGOXINE NATIVELLE [Concomitant]
     Active Substance: DIGOXIN
     Dosage: 0.25, MG, QD
     Route: 048
  20. LAMALINE (OLD FORMULA) [Concomitant]
     Active Substance: ACETAMINOPHEN\BELLADONNA LEAF\CAFFEINE\OPIUM
     Dosage: 4 DF, QD
  21. ATORVASTATIN [Concomitant]
     Active Substance: ATORVASTATIN
     Dosage: 30MG. QD
     Route: 048
  22. SKENAN [Concomitant]
     Active Substance: MORPHINE SULFATE
     Dosage: 10 MG, QD
     Route: 048
  23. IMUREL [Suspect]
     Active Substance: AZATHIOPRINE SODIUM
     Indication: BEHCET^S SYNDROME
     Dosage: 50, MG,QD
     Route: 048
     Dates: end: 20171204
  24. PROPYLEX [Suspect]
     Active Substance: PROPYLENE GLYCOL
     Indication: HYPERTHYROIDISM
     Dosage: 100 MG, QD
     Route: 048
     Dates: end: 20171211
  25. NIVAQUINE [Concomitant]
     Active Substance: CHLOROQUINE
     Route: 048
  26. VISMED [Concomitant]
     Active Substance: HYALURONATE SODIUM
     Dosage: 4 GTT, QD
     Route: 047
  27. LAROXYL [Concomitant]
     Active Substance: AMITRIPTYLINE HYDROCHLORIDE
     Dosage: 40MG/ML, 15GTT, QD
     Route: 048

REACTIONS (2)
  - Pancytopenia [Recovering/Resolving]
  - Acute kidney injury [Recovering/Resolving]

NARRATIVE: CASE EVENT DATE: 20171129
